FAERS Safety Report 4652614-1 (Version None)
Quarter: 2005Q2

REPORT INFORMATION
  Report Type: 
  Country: None (occurrence: None)
  Receive Date: 20050502
  Receipt Date: 20050413
  Transmission Date: 20051028
  Serious: Yes (Death, Other)
  Sender: FDA-Public Use
  Company Number: DE-2005-002761

PATIENT
  Age: 92 Year
  Sex: Female
  Weight: 60 kg

DRUGS (8)
  1. ULTRAVIST 370 [Suspect]
     Indication: ARTERIOGRAM CORONARY
     Dosage: 20 ML, 1 DOSE, INTRA-ARTERIAL
     Route: 013
     Dates: start: 20050223, end: 20050223
  2. ACETYLSALICYLIC ACID SRT [Concomitant]
  3. NITRATE [Concomitant]
  4. BETA BLOCKING AGENTS [Concomitant]
  5. DIGITOXIN TAB [Concomitant]
  6. RAMIPRIL [Concomitant]
  7. PANTOPRAZOLE SODIUM [Concomitant]
  8. STATIN [Concomitant]

REACTIONS (4)
  - ARTERIOSPASM CORONARY [None]
  - BRADYCARDIA [None]
  - ELECTROMECHANICAL DISSOCIATION [None]
  - HYPOTENSION [None]
